FAERS Safety Report 9852102 (Version 2)
Quarter: 2014Q1

REPORT INFORMATION
  Report Type: Spontaneous
  Country: BR (occurrence: BR)
  Receive Date: 20140129
  Receipt Date: 20140217
  Transmission Date: 20141002
  Serious: No
  Sender: FDA-Public Use
  Company Number: BR-AMGEN-BRASP2014005865

PATIENT
  Age: 60 Year
  Sex: Female
  Weight: 62 kg

DRUGS (1)
  1. ENBREL [Suspect]
     Indication: ANKYLOSING SPONDYLITIS
     Dosage: 50 MG, ONCE WEEKLY
     Route: 058
     Dates: start: 20131021

REACTIONS (3)
  - Functional gastrointestinal disorder [Unknown]
  - Decreased immune responsiveness [Unknown]
  - Urinary tract infection [Unknown]
